FAERS Safety Report 21891705 (Version 1)
Quarter: 2023Q1

REPORT INFORMATION
  Report Type: Spontaneous
  Country: US (occurrence: None)
  Receive Date: 20230120
  Receipt Date: 20230120
  Transmission Date: 20230418
  Serious: No
  Sender: FDA-Public Use
  Company Number: None

PATIENT
  Sex: 0

DRUGS (1)
  1. LATANOPROST [Suspect]
     Active Substance: LATANOPROST

REACTIONS (5)
  - Dry eye [None]
  - Ocular hyperaemia [None]
  - Eye pruritus [None]
  - Asthenopia [None]
  - Photophobia [None]
